FAERS Safety Report 9676264 (Version 2)
Quarter: 2013Q4

REPORT INFORMATION
  Report Type: Report from Study
  Country: DE (occurrence: DE)
  Receive Date: 20131107
  Receipt Date: 20131107
  Transmission Date: 20140711
  Serious: Yes (Hospitalization)
  Sender: FDA-Public Use
  Company Number: DE-VERTEX PHARMACEUTICALS INC-000000000000000642

PATIENT
  Age: 46 Year
  Sex: Male
  Weight: 110 kg

DRUGS (5)
  1. VX-950 (TELAPREVIR) [Suspect]
     Indication: HEPATITIS C
     Dosage: DOSAGE FORM: TABLET
     Route: 048
     Dates: start: 20120322, end: 20120614
  2. COPEGUS [Concomitant]
     Indication: HEPATITIS C
     Dosage: 1200 MG, QD
     Route: 048
     Dates: start: 20120328
  3. COPEGUS [Concomitant]
     Dosage: 600 MG, UNK
     Route: 048
     Dates: start: 20120322, end: 20120328
  4. PEGASYS [Concomitant]
     Indication: HEPATITIS C
     Dosage: 180 ?G, QW
     Route: 058
     Dates: start: 20120322
  5. ENALAPRIL [Concomitant]
     Indication: HYPERTENSION
     Dosage: DOSAGE FORM: UNKNOWN
     Route: 048

REACTIONS (2)
  - Chronic sinusitis [Recovered/Resolved]
  - Syncope [Recovered/Resolved]
